FAERS Safety Report 20884209 (Version 1)
Quarter: 2022Q2

REPORT INFORMATION
  Report Type: Spontaneous
  Country: JP (occurrence: JP)
  Receive Date: 20220527
  Receipt Date: 20220527
  Transmission Date: 20220721
  Serious: Yes (Hospitalization, Other)
  Sender: FDA-Public Use
  Company Number: JP-PFIZER INC-202200739613

PATIENT
  Age: 76 Year
  Sex: Male

DRUGS (8)
  1. VYNDAQEL [Suspect]
     Active Substance: TAFAMIDIS MEGLUMINE
     Indication: Cardiac amyloidosis
     Dosage: 80 MG, DAILY
     Route: 048
  2. EPLERENONE [Concomitant]
     Active Substance: EPLERENONE
     Dosage: 50 MG, DAILY
     Route: 048
  3. BISOPROLOL [Concomitant]
     Active Substance: BISOPROLOL
     Dosage: 1.25 MG, DAILY
     Route: 048
  4. EDOXABAN [Concomitant]
     Active Substance: EDOXABAN
     Dosage: 15 MG, DAILY
     Route: 048
  5. DAPAGLIFLOZIN [Concomitant]
     Active Substance: DAPAGLIFLOZIN
     Dosage: 10 MG, DAILY
     Route: 048
  6. TOLVAPTAN [Concomitant]
     Active Substance: TOLVAPTAN
     Dosage: 15 MG, DAILY
     Route: 048
  7. FUROSEMIDE [Concomitant]
     Active Substance: FUROSEMIDE
     Dosage: 30 MG, DAILY
  8. ATORVASTATIN [Concomitant]
     Active Substance: ATORVASTATIN
     Dosage: 5 MG, DAILY
     Route: 048

REACTIONS (6)
  - Cardiac failure [Unknown]
  - Syncope [Unknown]
  - Bradycardia [Unknown]
  - Atrioventricular block complete [Unknown]
  - Aortic valve stenosis [Unknown]
  - Condition aggravated [Unknown]
